FAERS Safety Report 9645365 (Version 2)
Quarter: 2013Q4

REPORT INFORMATION
  Report Type: Spontaneous
  Country: US (occurrence: US)
  Receive Date: 20131025
  Receipt Date: 20131025
  Transmission Date: 20140711
  Serious: Yes (Other)
  Sender: FDA-Public Use
  Company Number: US-ELI_LILLY_AND_COMPANY-US201302006849

PATIENT
  Age: 83 Year
  Sex: Female

DRUGS (6)
  1. HUMULIN NPH [Suspect]
     Indication: DIABETES MELLITUS
     Dosage: UNK UNK, BID
     Route: 065
  2. HUMULIN NPH [Suspect]
     Dosage: UNK UNK, BID
     Route: 065
  3. HUMULIN NPH [Suspect]
     Dosage: UNK UNK, BID
     Route: 065
  4. HUMULIN NPH [Suspect]
     Dosage: UNK UNK, BID
     Route: 065
  5. INSULIN HUMAN [Suspect]
     Indication: DIABETES MELLITUS
     Dosage: 35 U, BID
     Route: 065
  6. LANTUS [Concomitant]
     Dosage: UNK

REACTIONS (4)
  - Macular degeneration [Not Recovered/Not Resolved]
  - Blepharospasm [Not Recovered/Not Resolved]
  - Foreign body [Unknown]
  - Pain [Unknown]
